FAERS Safety Report 8838075 (Version 1)
Quarter: 2012Q4

REPORT INFORMATION
  Report Type: 
  Country: ES (occurrence: ES)
  Receive Date: 20121012
  Receipt Date: 20121012
  Transmission Date: 20130627
  Serious: Yes (Hospitalization)
  Sender: FDA-Public Use
  Company Number: ES-BAXTER-2012BAX019312

PATIENT
  Age: 7 Year
  Sex: Male

DRUGS (6)
  1. GENOXAL [Suspect]
     Indication: ACUTE LYMPHOCYTIC LEUKAEMIA
     Route: 042
     Dates: start: 20120210, end: 20120210
  2. UROMITEXAN [Suspect]
     Indication: ACUTE LYMPHOCYTIC LEUKAEMIA
     Route: 042
     Dates: start: 20120210, end: 20120210
  3. VINCRISTINA [Suspect]
     Indication: ACUTE LYMPHOCYTIC LEUKAEMIA
     Route: 042
     Dates: start: 20120210, end: 20120210
  4. DAUNORUBICINA HIDROCLORURO [Suspect]
     Indication: ACUTE LYMPHOCYTIC LEUKAEMIA
     Route: 040
     Dates: start: 20120127, end: 20120128
  5. PREDNISONA [Concomitant]
     Indication: ACUTE LYMPHOCYTIC LEUKAEMIA
     Route: 042
     Dates: start: 20120127
  6. RANITIDINA [Concomitant]
     Indication: PROPHYLAXIS
     Route: 042
     Dates: start: 20120127

REACTIONS (1)
  - Hepatitis [Recovered/Resolved]
